FAERS Safety Report 12519995 (Version 1)
Quarter: 2016Q2

REPORT INFORMATION
  Report Type: Spontaneous
  Country: US (occurrence: US)
  Receive Date: 20160630
  Receipt Date: 20160630
  Transmission Date: 20160815
  Serious: No
  Sender: FDA-Public Use
  Company Number: US-PFIZER INC-2016304185

PATIENT
  Sex: Male

DRUGS (1)
  1. CHANTIX [Suspect]
     Active Substance: VARENICLINE TARTRATE
     Dosage: 1 DF, 2X/DAY

REACTIONS (5)
  - Depression [Unknown]
  - Feeling abnormal [Unknown]
  - Irritability [Unknown]
  - Joint injury [Unknown]
  - Malaise [Unknown]
